FAERS Safety Report 16195415 (Version 1)
Quarter: 2019Q2

REPORT INFORMATION
  Report Type: Spontaneous
  Country: US (occurrence: US)
  Receive Date: 20190415
  Receipt Date: 20190415
  Transmission Date: 20190711
  Serious: Yes (Life-Threatening, Hospitalization, Other)
  Sender: FDA-Public Use
  Company Number: US-LUPIN PHARMACEUTICALS INC.-2019-02187

PATIENT
  Age: 46 Year
  Sex: Male

DRUGS (3)
  1. IBUPROFEN. [Suspect]
     Active Substance: IBUPROFEN
     Indication: MUSCULOSKELETAL PAIN
     Dosage: 600 MILLIGRAM, QID
     Route: 065
  2. GABAPENTIN. [Suspect]
     Active Substance: GABAPENTIN
     Indication: MUSCULOSKELETAL PAIN
     Dosage: 200 MILLIGRAM, BID
     Route: 065
  3. GABAPENTIN. [Suspect]
     Active Substance: GABAPENTIN
     Dosage: 300 MILLIGRAM, BID
     Route: 065

REACTIONS (12)
  - Hallucination [Recovering/Resolving]
  - Malaise [Unknown]
  - Toxicity to various agents [Recovering/Resolving]
  - Mental disorder [Recovering/Resolving]
  - Liver injury [Recovering/Resolving]
  - Acute kidney injury [Recovering/Resolving]
  - Intentional product use issue [Recovering/Resolving]
  - Incorrect dose administered [Unknown]
  - Hypotension [Recovering/Resolving]
  - Myoclonus [Recovering/Resolving]
  - Drug clearance decreased [Recovering/Resolving]
  - Delirium [Recovering/Resolving]
